FAERS Safety Report 5156959-0 (Version None)
Quarter: 2006Q4

REPORT INFORMATION
  Report Type: 
  Country: None (occurrence: None)
  Receive Date: 20061124
  Receipt Date: 20061109
  Transmission Date: 20070319
  Serious: Yes (Other)
  Sender: FDA-Public Use
  Company Number: SE-ROCHE-470583

PATIENT
  Age: 59 Year
  Sex: Male

DRUGS (5)
  1. FUZEON [Suspect]
     Indication: VIRAL INFECTION
     Dosage: FORM REPORTED AS POWDER FOR SOLUTION FOR INJECTION. DOSAGE REGIMEN REPORTED AS 180 MGD MG D.
     Route: 058
     Dates: start: 20060320, end: 20060915
  2. TRIZIVIR [Suspect]
     Indication: VIRAL INFECTION
     Dosage: FORM AND STRENGTH REPORTED AS FILM-COATED TABLET 300 MG/150 MG/300 MG. DOSAGE REGIMEN REPORTED AS 2+
     Route: 048
     Dates: start: 20060320, end: 20060915
  3. APTIVUS [Suspect]
     Indication: VIRAL INFECTION
     Dosage: DOSAGE REGIMEN REPORTED AS 1 GMD GM D.
     Route: 048
     Dates: start: 20060320, end: 20060915
  4. APTIVUS [Suspect]
     Route: 048
  5. NORVIR [Suspect]
     Indication: VIRAL INFECTION
     Dosage: DOSAGE REGIMEN REPORTED AS 400 MGD MG D.
     Route: 048
     Dates: start: 20060320, end: 20060915

REACTIONS (1)
  - TRANSAMINASES INCREASED [None]
